FAERS Safety Report 22056388 (Version 2)
Quarter: 2023Q2

REPORT INFORMATION
  Report Type: Report from Study
  Country: US (occurrence: US)
  Receive Date: 20230302
  Receipt Date: 20230414
  Transmission Date: 20230721
  Serious: Yes (Other)
  Sender: FDA-Public Use
  Company Number: US-BIOGEN-2023BI01189409

PATIENT
  Age: 57 Year
  Sex: Female

DRUGS (1)
  1. TYSABRI [Suspect]
     Active Substance: NATALIZUMAB
     Indication: Multiple sclerosis
     Dosage: INFUSE OVER 1 HOUR
     Route: 050
     Dates: start: 20171222

REACTIONS (3)
  - Cardiac arrest [Unknown]
  - Hypertrophic cardiomyopathy [Unknown]
  - Arrhythmia [Unknown]

NARRATIVE: CASE EVENT DATE: 20220102
